FAERS Safety Report 12832035 (Version 4)
Quarter: 2017Q2

REPORT INFORMATION
  Report Type: Spontaneous
  Country: US (occurrence: US)
  Receive Date: 20161010
  Receipt Date: 20170425
  Transmission Date: 20170830
  Serious: No
  Sender: FDA-Public Use
  Company Number: PHEH2014US022472

PATIENT
  Sex: Female

DRUGS (3)
  1. TASIGNA [Suspect]
     Active Substance: NILOTINIB
     Dosage: 400 MG, BID (12 HOURS)
     Route: 065
     Dates: start: 20141027
  2. TASIGNA [Suspect]
     Active Substance: NILOTINIB
     Dosage: 600 MG, QD (200 MG A.M. AND 400 MG PM)
     Route: 065
  3. TASIGNA [Suspect]
     Active Substance: NILOTINIB
     Indication: CHRONIC MYELOID LEUKAEMIA
     Dosage: 300 MG, (100 MG QAM, 200 MG QHS)
     Route: 048
     Dates: start: 20140328

REACTIONS (13)
  - Protein total decreased [Unknown]
  - Dry skin [Unknown]
  - Blood count abnormal [Unknown]
  - Nausea [Not Recovered/Not Resolved]
  - Erythema [Unknown]
  - Fatigue [Not Recovered/Not Resolved]
  - Cholelithiasis [Unknown]
  - Myalgia [Not Recovered/Not Resolved]
  - Hepatic enzyme increased [Unknown]
  - Alanine aminotransferase decreased [Unknown]
  - Rash pruritic [Not Recovered/Not Resolved]
  - Arthralgia [Not Recovered/Not Resolved]
  - Rash erythematous [Not Recovered/Not Resolved]
